FAERS Safety Report 9795760 (Version 1)
Quarter: 2014Q1

REPORT INFORMATION
  Report Type: Spontaneous
  Country: TR (occurrence: TR)
  Receive Date: 20140103
  Receipt Date: 20140103
  Transmission Date: 20141002
  Serious: Yes (Hospitalization, Other)
  Sender: FDA-Public Use
  Company Number: TR-SA-2013SA136420

PATIENT
  Age: 53 Year
  Sex: Male

DRUGS (6)
  1. PENTAZOCINE HYDROCHLORIDE [Suspect]
     Indication: MIGRAINE
     Dosage: 2 AMPULES
     Route: 051
  2. PENTAZOCINE HYDROCHLORIDE [Suspect]
     Indication: DRUG ABUSE
     Dosage: 2 AMPULES
     Route: 051
  3. PENTAZOCINE HYDROCHLORIDE [Suspect]
     Indication: MIGRAINE
     Dosage: 20 AMPULES
     Route: 065
  4. PENTAZOCINE HYDROCHLORIDE [Suspect]
     Indication: DRUG ABUSE
     Dosage: 20 AMPULES
     Route: 065
  5. PENTAZOCINE HYDROCHLORIDE [Suspect]
     Indication: MIGRAINE
     Dosage: 10 AMPULES
     Route: 030
  6. PENTAZOCINE HYDROCHLORIDE [Suspect]
     Indication: DRUG ABUSE
     Dosage: 10 AMPULES
     Route: 030

REACTIONS (8)
  - Drug abuse [Unknown]
  - Wound necrosis [Recovered/Resolved]
  - Musculoskeletal pain [Unknown]
  - Drug withdrawal syndrome [Unknown]
  - Diarrhoea [Unknown]
  - Gastrointestinal disorder [Unknown]
  - Insomnia [Unknown]
  - Anhedonia [Unknown]
